FAERS Safety Report 7222481-0 (Version None)
Quarter: 2011Q1

REPORT INFORMATION
  Report Type: 
  Country: None (occurrence: None)
  Receive Date: 20110112
  Receipt Date: 20101229
  Transmission Date: 20110831
  Serious: Yes (Hospitalization)
  Sender: FDA-Public Use
  Company Number: DE-PFIZER INC-2010163589

PATIENT
  Age: 50 Year
  Sex: Female
  Weight: 65 kg

DRUGS (7)
  1. CLEXANE [Concomitant]
     Dosage: 40 MG, 1X/DAY
     Route: 058
     Dates: end: 20101101
  2. DUSPATAL ^PHILIPS-D^ [Concomitant]
     Dosage: UNK
     Dates: end: 20100101
  3. NOVALGIN [Concomitant]
     Indication: PAIN
     Dosage: 500MG DAILY
     Route: 048
  4. OMEPRAZOLE [Concomitant]
     Indication: REGURGITATION
     Dosage: 20MG DAILY
     Route: 048
  5. LYRICA [Suspect]
     Indication: METATARSALGIA
     Dosage: 20 MG, 3X/DAY
     Route: 048
     Dates: end: 20101114
  6. BISOPROLOL [Concomitant]
     Indication: HYPERTENSION
     Dosage: 5MG DAILY
     Route: 048
  7. LYRICA [Suspect]
     Indication: NEUROPATHY PERIPHERAL
     Dosage: 25 MG DAILY
     Route: 048

REACTIONS (3)
  - HEPATITIS ACUTE [None]
  - HEPATOTOXICITY [None]
  - LIVER INJURY [None]
